FAERS Safety Report 8615896 (Version 2)
Quarter: 2012Q4

REPORT INFORMATION
  Report Type: 
  Country: US (occurrence: US)
  Receive Date: 20120614
  Receipt Date: 20120927
  Transmission Date: 20130627
  Serious: No
  Sender: FDA-Public Use
  Company Number: US-AMGEN-USASP2012031574

PATIENT
  Age: 81 Year
  Sex: Female

DRUGS (21)
  1. PROLIA [Suspect]
     Indication: OSTEOPOROSIS POSTMENOPAUSAL
     Dosage: 60 mg, q6mo
     Route: 058
     Dates: start: 20120511
  2. POTASSIUM [Concomitant]
  3. ARMOUR THYROID [Concomitant]
  4. CALCIUM [Concomitant]
  5. CLONAZEPAM [Concomitant]
     Dosage: UNK UNK, qhs
  6. VITAMIN D [Concomitant]
  7. SPIRONOLACTONE [Concomitant]
     Dosage: 12.5 mg, bid
  8. SYMBICORT [Concomitant]
  9. IPRATROPIUM [Concomitant]
  10. ASPIRIN [Concomitant]
  11. LANOXIN [Concomitant]
     Dosage: 0.125 mg, qd
  12. VITAMIN E [Concomitant]
  13. VITAMIN B12 [Concomitant]
  14. SENNA [Concomitant]
  15. LOPRESSOR [Concomitant]
     Dosage: 75 mg, bid
  16. LASIX [Concomitant]
     Dosage: 20 mg, bid
  17. LINSEED [Concomitant]
  18. FIORICET [Concomitant]
  19. DOCUSATE CALCIUM [Concomitant]
  20. SPIRIVA [Concomitant]
  21. CALCIUM +VIT D [Concomitant]

REACTIONS (4)
  - Oral pain [Unknown]
  - Rhinorrhoea [Unknown]
  - Stomatitis [Unknown]
  - Lip swelling [Unknown]
